FAERS Safety Report 5377482-4 (Version None)
Quarter: 2007Q3

REPORT INFORMATION
  Report Type: 
  Country: None (occurrence: None)
  Receive Date: 20070703
  Receipt Date: 20070622
  Transmission Date: 20080115
  Serious: Yes (Hospitalization)
  Sender: FDA-Public Use
  Company Number: DE-ROCHE-456844

PATIENT
  Age: 62 Year
  Sex: Female

DRUGS (8)
  1. INTERFERON ALFA-2A [Suspect]
     Dosage: SIX DAILY DOSES, ON MONDAYS, WEDNESDAYS, AND FRIDAYS TO BE ADMINISTERED TOWARDS 16:00H.
     Route: 042
  2. PASPERTIN [Suspect]
     Indication: DRUG USE FOR UNKNOWN INDICATION
     Route: 065
  3. PASPERTIN [Suspect]
     Route: 065
  4. ACETAMINOPHEN [Suspect]
     Indication: DRUG USE FOR UNKNOWN INDICATION
     Route: 065
  5. PANTOZOL [Concomitant]
     Dosage: IN THE MORNING.
  6. DELIX 5 PLUS [Concomitant]
     Dosage: IN THE MORNING.
  7. HALDOL [Concomitant]
  8. LANTUS [Concomitant]
     Dosage: AT NIGHT.

REACTIONS (3)
  - GENERAL PHYSICAL HEALTH DETERIORATION [None]
  - MUSCULAR WEAKNESS [None]
  - PARAPLEGIA [None]
